FAERS Safety Report 10186675 (Version 1)
Quarter: 2014Q2

REPORT INFORMATION
  Report Type: Spontaneous
  Country: US (occurrence: US)
  Receive Date: 20140521
  Receipt Date: 20140521
  Transmission Date: 20141212
  Serious: Yes (Hospitalization, Other)
  Sender: FDA-Public Use
  Company Number: US-RB-067631-14

PATIENT
  Age: 38 Year
  Sex: Male

DRUGS (1)
  1. GENERIC BUPRENORPHINE/NALOXONE [Suspect]
     Indication: DRUG DEPENDENCE
     Route: 065
     Dates: start: 201401

REACTIONS (1)
  - Incontinence [Unknown]
